FAERS Safety Report 6930642-0 (Version None)
Quarter: 2010Q3

REPORT INFORMATION
  Report Type: 
  Country: None (occurrence: None)
  Receive Date: 20100813
  Receipt Date: 20090519
  Transmission Date: 20110219
  Serious: Yes (Hospitalization, Disabling)
  Sender: FDA-Public Use
  Company Number: 000876

PATIENT
  Sex: Female

DRUGS (6)
  1. ISOSORBIDE MONONITRATE [Suspect]
     Indication: MYOCARDIAL ISCHAEMIA
     Dosage: 20 MG, 20 MG DAILY ORAL
     Route: 048
  2. INFLUENZA VACCINE (BLINDED VACCINE INJECTION) [Suspect]
     Dosage: ONCE INTRAMUSCULAR
     Route: 030
     Dates: start: 20081014, end: 20081014
  3. TIOTROPIUM (TIOTROPIUM) [Suspect]
     Indication: CHRONIC OBSTRUCTIVE PULMONARY DISEASE
     Dosage: 18 UG, 18 UG DAILY RESPIRATORY (INHALATION)
     Route: 055
  4. LISINOPRIL [Concomitant]
  5. TORSEMIDE [Concomitant]
  6. THEOPHYLLINE [Concomitant]

REACTIONS (4)
  - ATRIAL FIBRILLATION [None]
  - CHRONIC OBSTRUCTIVE PULMONARY DISEASE [None]
  - CONDITION AGGRAVATED [None]
  - CORONARY ARTERY DISEASE [None]
